FAERS Safety Report 17192494 (Version 1)
Quarter: 2019Q4

REPORT INFORMATION
  Report Type: Spontaneous
  Country: US (occurrence: US)
  Receive Date: 20191223
  Receipt Date: 20191223
  Transmission Date: 20200122
  Serious: No
  Sender: FDA-Public Use
  Company Number: US-ASTRAZENECA-2019SF69274

PATIENT
  Sex: Female

DRUGS (2)
  1. BYETTA [Suspect]
     Active Substance: EXENATIDE
     Indication: DIABETES MELLITUS
     Dosage: FOR TWO YEARS
     Route: 065
  2. BYETTA [Suspect]
     Active Substance: EXENATIDE
     Indication: DIABETES MELLITUS
     Route: 065
     Dates: start: 2019

REACTIONS (4)
  - Migraine [Recovered/Resolved with Sequelae]
  - Blood glucose increased [Not Recovered/Not Resolved]
  - Product dose omission [Not Recovered/Not Resolved]
  - Device physical property issue [Unknown]
